FAERS Safety Report 4772961-2 (Version None)
Quarter: 2005Q3

REPORT INFORMATION
  Report Type: 
  Country: None (occurrence: None)
  Receive Date: 20050919
  Receipt Date: 20050915
  Transmission Date: 20060218
  Serious: Yes (Death, Other)
  Sender: FDA-Public Use
  Company Number: PHEH2005US10283

PATIENT
  Age: 42 Year
  Sex: Male

DRUGS (3)
  1. CLOZARIL [Suspect]
     Indication: CHOREA
     Dosage: 12.5 MG, QD
     Route: 048
     Dates: start: 20020101
  2. BACLOFEN [Concomitant]
  3. HALDOL [Concomitant]

REACTIONS (3)
  - DEATH [None]
  - OEDEMA PERIPHERAL [None]
  - SURGERY [None]
